FAERS Safety Report 6249915-2 (Version None)
Quarter: 2009Q2

REPORT INFORMATION
  Report Type: 
  Country: None (occurrence: None)
  Receive Date: 20090625
  Receipt Date: 20090616
  Transmission Date: 20091009
  Serious: Yes (Other)
  Sender: FDA-Public Use
  Company Number: GXKR2009PL06330

PATIENT
  Age: 75 Year
  Sex: Male

DRUGS (9)
  1. CISPLATIN [Suspect]
     Indication: CHEMOTHERAPY
     Dosage: FOUR CYCLES
  2. CISPLATIN [Suspect]
     Indication: GASTRIC CANCER
     Dosage: FOUR CYCLES
  3. CISPLATIN [Suspect]
     Indication: METASTASES TO ADRENALS
     Dosage: FOUR CYCLES
  4. CISPLATIN [Suspect]
     Indication: METASTASES TO LUNG
     Dosage: FOUR CYCLES
  5. EPIRUBICIN [Suspect]
     Indication: CHEMOTHERAPY
     Dosage: FOUR CYCLES
  6. EPIRUBICIN [Suspect]
     Indication: GASTRIC CANCER
     Dosage: FOUR CYCLES
  7. EPIRUBICIN [Suspect]
     Indication: METASTASES TO LUNG
     Dosage: FOUR CYCLES
  8. FLUOROURACIL [Suspect]
     Dosage: FOUR CYCLES
  9. FOLINIC ACID (NGX) (FOLINIC ACID) UNKNOWN [Suspect]
     Dosage: FOUR CYCLES

REACTIONS (2)
  - ATRIAL FIBRILLATION [None]
  - EXERCISE TOLERANCE DECREASED [None]
